FAERS Safety Report 9884060 (Version 1)
Quarter: 2014Q1

REPORT INFORMATION
  Report Type: Spontaneous
  Country: None (occurrence: US)
  Receive Date: 20140210
  Receipt Date: 20140210
  Transmission Date: 20141002
  Serious: No
  Sender: FDA-Public Use
  Company Number: US-ALLERGAN-1316355US

PATIENT
  Age: 62 Year
  Sex: Female

DRUGS (1)
  1. BOTOX [Suspect]
     Indication: MIGRAINE
     Dosage: UNK
     Dates: start: 201307, end: 201307

REACTIONS (5)
  - Diplopia [Unknown]
  - Hypermetropia [Unknown]
  - Drug ineffective [Unknown]
  - Headache [Unknown]
  - Vision blurred [Unknown]
